FAERS Safety Report 9857012 (Version 1)
Quarter: 2014Q1

REPORT INFORMATION
  Report Type: Spontaneous
  Country: CA (occurrence: None)
  Receive Date: 20140128
  Receipt Date: 20140128
  Transmission Date: 20141002
  Serious: Yes (Life-Threatening)
  Sender: FDA-Public Use
  Company Number: 2014P1000361

PATIENT
  Sex: Female

DRUGS (1)
  1. EPINEPHRINE [Suspect]
     Indication: INVESTIGATION

REACTIONS (3)
  - Electrocardiogram QT prolonged [None]
  - Torsade de pointes [None]
  - Ventricular fibrillation [None]
